FAERS Safety Report 9657561 (Version 2)
Quarter: 2013Q4

REPORT INFORMATION
  Report Type: Spontaneous
  Country: DE (occurrence: None)
  Receive Date: 20131029
  Receipt Date: 20131211
  Transmission Date: 20140711
  Serious: Yes (Other)
  Sender: FDA-Public Use
  Company Number: DSM-2013-00988

PATIENT
  Age: 54 Year
  Sex: Male

DRUGS (2)
  1. VOTUM PLUS [Suspect]
     Indication: HYPERTENSION
     Dosage: 40 / 12.5 MG (1 IN 1 D) , ORAL
     Route: 048
     Dates: start: 2010, end: 201309
  2. ASS (ACETYLSALICYLIC) (100 MILLIGRAM) (ACETYLSALICYLIC ACID) [Concomitant]

REACTIONS (4)
  - Hepatic steatosis [None]
  - Hepatitis [None]
  - Hepatomegaly [None]
  - Drug ineffective [None]
